FAERS Safety Report 8832161 (Version 1)
Quarter: 2012Q4

REPORT INFORMATION
  Report Type: Report from Study
  Country: DE (occurrence: DE)
  Receive Date: 20121009
  Receipt Date: 20121009
  Transmission Date: 20130627
  Serious: Yes (Other)
  Sender: FDA-Public Use
  Company Number: DE-ROCHE-1141202

PATIENT
  Age: 70 Year
  Sex: Male

DRUGS (4)
  1. RANIBIZUMAB [Suspect]
     Indication: AGE-RELATED MACULAR DEGENERATION
     Route: 050
     Dates: start: 20110822
  2. RANIBIZUMAB [Suspect]
     Route: 050
     Dates: start: 20110919
  3. RANIBIZUMAB [Suspect]
     Route: 050
     Dates: start: 20111017
  4. RANIBIZUMAB [Suspect]
     Route: 050
     Dates: start: 20111128

REACTIONS (2)
  - Visual acuity reduced [Not Recovered/Not Resolved]
  - Oedema [Not Recovered/Not Resolved]
